FAERS Safety Report 17941115 (Version 1)
Quarter: 2020Q2

REPORT INFORMATION
  Report Type: Spontaneous
  Country: US (occurrence: US)
  Receive Date: 20200624
  Receipt Date: 20200624
  Transmission Date: 20200714
  Serious: Yes (Hospitalization)
  Sender: FDA-Public Use
  Company Number: None

PATIENT
  Age: 30 Year
  Sex: Female

DRUGS (18)
  1. DEXAMETHASONE 5MG IV [Concomitant]
  2. ENOXPARIN 35MG SQ [Concomitant]
  3. ETOMIDATE 16MG IV [Concomitant]
  4. REMDESIVIR INJECTION 100MG/20ML (5MG/ML) [Suspect]
     Active Substance: REMDESIVIR
     Indication: COVID-19
     Dosage: ?          OTHER FREQUENCY:ONCE;?
     Route: 041
  5. TOCILIZUMAB INJECTIONS [Suspect]
     Active Substance: TOCILIZUMAB
     Indication: COVID-19
     Dosage: ?          OTHER FREQUENCY:ONCE;?
     Route: 042
  6. MAALOX ANTACID [Concomitant]
     Active Substance: ALUMINUM HYDROXIDE\DIMETHICONE\MAGNESIUM HYDROXIDE
  7. ATORVASTATIN 40MG TABLET [Concomitant]
     Active Substance: ATORVASTATIN
  8. FAMOTIDINE 20MG IV [Concomitant]
  9. MELATONIN 10MG PO [Concomitant]
  10. ZINC 220MG [Concomitant]
  11. ZOSYN 3.75MG IV [Concomitant]
  12. MUCOMYST 20% [Concomitant]
  13. ABSCORBIC ACID 500MG TABLET [Concomitant]
  14. VANCOMYCIN 1250MG IV [Concomitant]
  15. ASPIRIN 81MG [Concomitant]
     Active Substance: ASPIRIN
  16. CHLORHEXIDINE ORAL RINSE [Concomitant]
  17. ROCURONIUM 70MG IV [Concomitant]
  18. TOCILIZUMAB INJECTIONS [Suspect]
     Active Substance: TOCILIZUMAB

REACTIONS (4)
  - Nephropathy toxic [None]
  - Blood creatinine increased [None]
  - Acute kidney injury [None]
  - Renal impairment [None]

NARRATIVE: CASE EVENT DATE: 20200603
